FAERS Safety Report 12845739 (Version 2)
Quarter: 2017Q1

REPORT INFORMATION
  Report Type: Report from Study
  Country: VN (occurrence: VN)
  Receive Date: 20161013
  Receipt Date: 20170321
  Transmission Date: 20170428
  Serious: Yes (Hospitalization)
  Sender: FDA-Public Use
  Company Number: VN-B.I. PHARMACEUTICALS,INC./RIDGEFIELD-2016-BI-37714BI

PATIENT
  Age: 53 Year
  Sex: Male
  Weight: 56 kg

DRUGS (3)
  1. VENTOLIN [Concomitant]
     Active Substance: ALBUTEROL SULFATE
     Indication: CHRONIC OBSTRUCTIVE PULMONARY DISEASE
     Route: 055
     Dates: start: 20160120
  2. FLIXOTIDE [Concomitant]
     Active Substance: FLUTICASONE PROPIONATE
     Indication: CHRONIC OBSTRUCTIVE PULMONARY DISEASE
     Route: 065
     Dates: start: 20160127, end: 20170119
  3. BLINDED TIOTROPIUM BROMIDE+OLODATEROL [Suspect]
     Active Substance: OLODATEROL HYDROCHLORIDE\TIOTROPIUM BROMIDE MONOHYDRATE
     Indication: CHRONIC OBSTRUCTIVE PULMONARY DISEASE
     Route: 055
     Dates: start: 20160127

REACTIONS (1)
  - Ureterolithiasis [Recovered/Resolved]

NARRATIVE: CASE EVENT DATE: 20160524
